FAERS Safety Report 6023072-X (Version None)
Quarter: 2008Q4

REPORT INFORMATION
  Report Type: 
  Country: None (occurrence: None)
  Receive Date: 20081230
  Receipt Date: 20060503
  Transmission Date: 20090506
  Serious: No
  Sender: FDA-Public Use
  Company Number: US-ABBOTT-08P-163-0462887-00

PATIENT

DRUGS (1)
  1. OMNICEF [Suspect]
     Indication: OTITIS MEDIA ACUTE

REACTIONS (2)
  - DRUG INEFFECTIVE [None]
  - PYREXIA [None]
